FAERS Safety Report 25359329 (Version 2)
Quarter: 2025Q2

REPORT INFORMATION
  Report Type: Spontaneous
  Country: US (occurrence: US)
  Receive Date: 20250526
  Receipt Date: 20250605
  Transmission Date: 20250717
  Serious: Yes (Hospitalization, Other)
  Sender: FERRING
  Company Number: US-FERRINGPH-2025FE02556

PATIENT

DRUGS (1)
  1. ADSTILADRIN [Suspect]
     Active Substance: NADOFARAGENE FIRADENOVEC-VNCG
     Indication: Product used for unknown indication
     Route: 065
     Dates: start: 20250505

REACTIONS (4)
  - Encephalopathy [Unknown]
  - Hospitalisation [Recovered/Resolved]
  - Mental status changes [Unknown]
  - Viraemia [Unknown]

NARRATIVE: CASE EVENT DATE: 20250501
